FAERS Safety Report 14172688 (Version 1)
Quarter: 2017Q4

REPORT INFORMATION
  Report Type: Spontaneous
  Country: US (occurrence: None)
  Receive Date: 20171108
  Receipt Date: 20171108
  Transmission Date: 20180321
  Serious: Yes (Hospitalization, Disabling)
  Sender: FDA-Public Use
  Company Number: None

PATIENT
  Age: 86 Year
  Sex: Female
  Weight: 57.61 kg

DRUGS (11)
  1. CRANBERRY. [Concomitant]
     Active Substance: CRANBERRY
  2. FLUOXETINE [Concomitant]
     Active Substance: FLUOXETINE HYDROCHLORIDE
  3. LOSARTAN. [Concomitant]
     Active Substance: LOSARTAN
  4. POTASSIUM CHLORIDE. [Concomitant]
     Active Substance: POTASSIUM CHLORIDE
  5. ACYCLOVIR. [Concomitant]
     Active Substance: ACYCLOVIR
  6. AMLODIPINE [Concomitant]
     Active Substance: AMLODIPINE BESYLATE
  7. LISINOPRIL-HYDROCHLOROTHIAZIDE [Concomitant]
     Active Substance: HYDROCHLOROTHIAZIDE\LISINOPRIL
  8. PRAVACHOL [Suspect]
     Active Substance: PRAVASTATIN SODIUM
     Indication: BLOOD CHOLESTEROL ABNORMAL
     Dosage: FREQUENCY - 1 TAB IN THE EVENING
     Route: 048
     Dates: start: 20170709, end: 20170927
  9. PRAVASTATIN. [Suspect]
     Active Substance: PRAVASTATIN
  10. ALEVE [Concomitant]
     Active Substance: NAPROXEN SODIUM
  11. MULTI VITAMINS [Concomitant]
     Active Substance: VITAMINS

REACTIONS (7)
  - Suicidal ideation [None]
  - Pain in extremity [None]
  - Urinary retention [None]
  - Functional gastrointestinal disorder [None]
  - Impaired quality of life [None]
  - Eye movement disorder [None]
  - Product label on wrong product [None]

NARRATIVE: CASE EVENT DATE: 20170709
